FAERS Safety Report 8806745 (Version 1)
Quarter: 2012Q4

REPORT INFORMATION
  Report Type: 
  Country: GB (occurrence: GB)
  Receive Date: 20120925
  Receipt Date: 20120925
  Transmission Date: 20130627
  Serious: Yes (Hospitalization)
  Sender: FDA-Public Use
  Company Number: PHHY2012GB081632

PATIENT
  Age: 50 Year

DRUGS (13)
  1. OMEPRAZOLE [Suspect]
     Dosage: 40 mg, QD
     Route: 048
     Dates: start: 20120801
  2. ASPIRIN [Concomitant]
     Dosage: 75 mg, UNK
     Route: 048
     Dates: start: 20110101
  3. BISOPROLOL [Concomitant]
     Dosage: 3.75 mg, QD
     Route: 048
     Dates: start: 20110101
  4. BUMETANIDE [Concomitant]
     Dosage: 2 mg, BID
     Dates: start: 20110101
  5. DIGOXIN [Concomitant]
     Dosage: 187.5 mg, QD
     Route: 048
     Dates: start: 20120101
  6. LACTULOSE [Concomitant]
     Dosage: 10 ml, BID
     Route: 048
     Dates: start: 20110101
  7. METFORMIN [Concomitant]
     Dosage: 500 mg, TID
     Route: 048
     Dates: start: 20110101
  8. MIRTAZAPINE [Concomitant]
     Dosage: 15 mg, QD
     Route: 048
     Dates: start: 20120101
  9. PARACETAMOL [Concomitant]
     Dosage: 1 g, PRN
     Route: 048
     Dates: start: 20110101
  10. RAMIPRIL [Concomitant]
     Dosage: 5 mg, QD
     Route: 048
     Dates: start: 20110101
  11. SIMVASTATIN [Concomitant]
     Dosage: 40 mg, QD
     Route: 048
     Dates: start: 20110101
  12. SPIRONOLACTONE [Concomitant]
     Dosage: 25 mg, QD
     Route: 048
     Dates: start: 20120101
  13. THIAMINE [Concomitant]
     Dosage: 100 mg, BID
     Route: 048
     Dates: start: 20110101

REACTIONS (1)
  - Chapped lips [Unknown]
